FAERS Safety Report 11258853 (Version 1)
Quarter: 2015Q3

REPORT INFORMATION
  Report Type: Spontaneous
  Country: US (occurrence: US)
  Receive Date: 20150710
  Receipt Date: 20150710
  Transmission Date: 20151125
  Serious: No
  Sender: FDA-Public Use
  Company Number: US-PFIZER INC-2015228883

PATIENT
  Age: 51 Year
  Sex: Male
  Weight: 82 kg

DRUGS (6)
  1. BACLOFEN. [Suspect]
     Active Substance: BACLOFEN
     Indication: MUSCLE DISORDER
     Dosage: 120 MG, UNK
     Dates: start: 2000
  2. BACLOFEN. [Suspect]
     Active Substance: BACLOFEN
     Indication: INSOMNIA
  3. CLONAPIN [Suspect]
     Active Substance: CLONAZEPAM
     Indication: SLEEP DISORDER
     Dosage: 8 MG, 1X/DAY  (AT BEDTIME)
     Dates: start: 2000
  4. SEROQUEL [Suspect]
     Active Substance: QUETIAPINE FUMARATE
     Indication: SLEEP DISORDER
     Dosage: 300 MG, UNK
     Dates: start: 2002
  5. SKELAXIN [Suspect]
     Active Substance: METAXALONE
     Indication: MUSCLE SPASMS
     Dosage: 1600 MG, 1X/DAY (ALL AT ONCE AT BEDTIME)
     Dates: start: 2000
  6. SKELAXIN [Suspect]
     Active Substance: METAXALONE
     Indication: INSOMNIA

REACTIONS (1)
  - Drug ineffective [Unknown]
